FAERS Safety Report 25523315 (Version 1)
Quarter: 2025Q3

REPORT INFORMATION
  Report Type: Spontaneous
  Country: JP (occurrence: JP)
  Receive Date: 20250707
  Receipt Date: 20250707
  Transmission Date: 20251020
  Serious: Yes (Death, Hospitalization)
  Sender: BEIGENE
  Company Number: JP-BEIGENE-BGN-2025-010872

PATIENT

DRUGS (1)
  1. BRUKINSA [Suspect]
     Active Substance: ZANUBRUTINIB
     Indication: Waldenstrom^s macroglobulinaemia
     Dosage: 2 DOSAGE FORM, BID

REACTIONS (1)
  - Disease progression [Fatal]
